FAERS Safety Report 9838450 (Version 1)
Quarter: 2013Q4

REPORT INFORMATION
  Report Type: Spontaneous
  Country: US (occurrence: None)
  Receive Date: 20131206
  Receipt Date: 20131206
  Transmission Date: 20140711
  Serious: No
  Sender: FDA-Public Use
  Company Number: 374295

PATIENT
  Age: 55 Year
  Sex: Male
  Weight: 113.4 kg

DRUGS (2)
  1. NOVOLOG [Suspect]
     Indication: TYPE 2 DIABETES MELLITUS
     Dosage: SLIDING SCALE, SUBCUTANEOUS
     Route: 058
     Dates: start: 20130325
  2. GABAPENTIN (GABAPENTIN) [Concomitant]

REACTIONS (1)
  - Blood glucose increased [None]
